FAERS Safety Report 7910558-3 (Version None)
Quarter: 2011Q4

REPORT INFORMATION
  Report Type: 
  Country: None (occurrence: None)
  Receive Date: 20111111
  Receipt Date: 20111104
  Transmission Date: 20120403
  Serious: Yes (Other)
  Sender: FDA-Public Use
  Company Number: PHHY2011FR93027

PATIENT
  Sex: Female

DRUGS (1)
  1. CLOZAPINE [Suspect]
     Indication: TREMOR
     Route: 048
     Dates: start: 20110201

REACTIONS (1)
  - THROMBOPHLEBITIS SUPERFICIAL [None]
